FAERS Safety Report 8068256-4 (Version None)
Quarter: 2012Q1

REPORT INFORMATION
  Report Type: 
  Country: None (occurrence: None)
  Receive Date: 20120124
  Receipt Date: 20111010
  Transmission Date: 20120608
  Serious: No
  Sender: FDA-Public Use
  Company Number: US-AMGEN-USASP2011052276

PATIENT
  Age: 70 Year
  Sex: Female

DRUGS (8)
  1. LORTAB [Concomitant]
  2. NITROGLYCERIN [Concomitant]
  3. PLAVIX [Concomitant]
  4. VITAMIN D [Concomitant]
  5. PROLIA [Suspect]
     Indication: OSTEOPOROSIS POSTMENOPAUSAL
     Dosage: 60 MG, Q6MO
     Dates: start: 20110929
  6. ASPIRIN [Concomitant]
  7. PRENEXA [Concomitant]
  8. CALCIUM [Concomitant]

REACTIONS (4)
  - ASTHENIA [None]
  - BONE PAIN [None]
  - PARAESTHESIA [None]
  - PAIN [None]
